FAERS Safety Report 12122280 (Version 4)
Quarter: 2016Q3

REPORT INFORMATION
  Report Type: Report from Study
  Country: IN (occurrence: IN)
  Receive Date: 20160226
  Receipt Date: 20160916
  Transmission Date: 20161109
  Serious: Yes (Death, Hospitalization)
  Sender: FDA-Public Use
  Company Number: IN-B.I. PHARMACEUTICALS,INC./RIDGEFIELD-2016-BI-11943BI

PATIENT
  Age: 53 Year
  Sex: Female
  Weight: 47 kg

DRUGS (6)
  1. ACENAC-N [Concomitant]
     Indication: PAIN
     Dosage: 2 ANZ
     Route: 048
     Dates: start: 20141001
  2. STEMETIL [Concomitant]
     Active Substance: PROCHLORPERAZINE MALEATE
     Indication: VOMITING
  3. BIBW 2992 [Suspect]
     Active Substance: AFATINIB
     Indication: SQUAMOUS CELL CARCINOMA OF HEAD AND NECK
     Dosage: 40 MG
     Route: 048
     Dates: start: 20160128, end: 20160221
  4. STEMETIL [Concomitant]
     Active Substance: PROCHLORPERAZINE MALEATE
     Indication: NAUSEA
     Dosage: 5 MG SOS MD
     Route: 048
     Dates: start: 20141001
  5. TRAMADO HCL [Concomitant]
     Indication: PAIN
     Dosage: 100 MG
     Route: 048
     Dates: start: 20160119
  6. RUMORF [Concomitant]
     Indication: PAIN
     Dosage: 30 MG
     Route: 048
     Dates: start: 20141001

REACTIONS (2)
  - Vaginal haemorrhage [Unknown]
  - General physical health deterioration [Fatal]

NARRATIVE: CASE EVENT DATE: 20160210
